FAERS Safety Report 20390170 (Version 1)
Quarter: 2022Q1

REPORT INFORMATION
  Report Type: Spontaneous
  Country: US (occurrence: US)
  Receive Date: 20220128
  Receipt Date: 20220128
  Transmission Date: 20220423
  Serious: Yes (Hospitalization, Other)
  Sender: FDA-Public Use
  Company Number: US-LUPIN PHARMACEUTICALS INC.-2022-01026

PATIENT
  Age: 43 Year
  Sex: Female

DRUGS (5)
  1. VORICONAZOLE [Suspect]
     Active Substance: VORICONAZOLE
     Indication: Chronic pulmonary histoplasmosis
     Dosage: 50 MILLIGRAM, TABLET (TEST DOSE)
     Route: 048
  2. VORICONAZOLE [Suspect]
     Active Substance: VORICONAZOLE
     Indication: Pulmonary cavitation
  3. ITRACONAZOLE [Suspect]
     Active Substance: ITRACONAZOLE
     Indication: Chronic pulmonary histoplasmosis
     Dosage: 200 MG, TID
     Route: 048
  4. ITRACONAZOLE [Suspect]
     Active Substance: ITRACONAZOLE
     Indication: Pulmonary cavitation
     Dosage: 200 MG, BID
     Route: 048
  5. ITRACONAZOLE [Suspect]
     Active Substance: ITRACONAZOLE
     Dosage: 1 DOSAGE FORM
     Route: 048

REACTIONS (5)
  - Hypersensitivity [Recovered/Resolved]
  - Urticaria [Recovered/Resolved]
  - Angioedema [Recovered/Resolved]
  - Reaction to excipient [Recovered/Resolved]
  - Cross sensitivity reaction [Recovered/Resolved]
